FAERS Safety Report 20185085 (Version 1)
Quarter: 2021Q4

REPORT INFORMATION
  Report Type: Spontaneous
  Country: US (occurrence: US)
  Receive Date: 20211215
  Receipt Date: 20211215
  Transmission Date: 20220303
  Serious: Yes (Other)
  Sender: FDA-Public Use
  Company Number: US-CELGENE-USA-20211202777

PATIENT
  Age: 73 Year
  Sex: Female

DRUGS (2)
  1. THALIDOMIDE [Suspect]
     Active Substance: THALIDOMIDE
     Indication: Gastrointestinal angiodysplasia
     Dosage: 50 MILLIGRAM
     Route: 048
     Dates: start: 20211104
  2. THALIDOMIDE [Suspect]
     Active Substance: THALIDOMIDE
     Indication: Off label use
     Dosage: 100 MILLIGRAM
     Route: 048
     Dates: start: 20211104

REACTIONS (3)
  - Full blood count decreased [Not Recovered/Not Resolved]
  - Back pain [Not Recovered/Not Resolved]
  - Asthenia [Not Recovered/Not Resolved]

NARRATIVE: CASE EVENT DATE: 20211129
